FAERS Safety Report 4831369-1 (Version None)
Quarter: 2005Q4

REPORT INFORMATION
  Report Type: 
  Country: None (occurrence: None)
  Receive Date: 20051118
  Receipt Date: 20051025
  Transmission Date: 20060501
  Serious: Yes (Other)
  Sender: FDA-Public Use
  Company Number: US-GLAXOSMITHKLINE-A0579834A

PATIENT
  Age: 34 Year
  Sex: Female
  Weight: 81.8 kg

DRUGS (2)
  1. WELLBUTRIN XL [Suspect]
     Indication: DEPRESSION
     Dosage: 150MG IN THE MORNING
     Route: 048
     Dates: start: 20051021
  2. LAMICTAL [Suspect]
     Indication: BIPOLAR II DISORDER
     Route: 048

REACTIONS (2)
  - MANIA [None]
  - POLLAKIURIA [None]
